FAERS Safety Report 4591355-6 (Version None)
Quarter: 2005Q1

REPORT INFORMATION
  Report Type: 
  Country: None (occurrence: None)
  Receive Date: 20050223
  Receipt Date: 20050223
  Transmission Date: 20050727
  Serious: No
  Sender: FDA-Public Use
  Company Number: None

PATIENT
  Age: 39 Year
  Sex: Female

DRUGS (2)
  1. LOPRESSOR [Suspect]
     Indication: HYPERTENSION
     Dosage: 5 MG IV
     Route: 042
  2. LEVOPHED [Suspect]
     Indication: HYPOTENSION
     Dosage: 4 MG IV
     Route: 042
     Dates: start: 20041224

REACTIONS (2)
  - MEDICATION ERROR [None]
  - PHARMACEUTICAL PRODUCT COMPLAINT [None]
